FAERS Safety Report 6337801-9 (Version None)
Quarter: 2009Q3

REPORT INFORMATION
  Report Type: 
  Country: None (occurrence: None)
  Receive Date: 20090902
  Receipt Date: 20090828
  Transmission Date: 20100115
  Serious: Yes (Other)
  Sender: FDA-Public Use
  Company Number: A0791835A

PATIENT
  Sex: Female

DRUGS (4)
  1. ADVAIR HFA [Suspect]
     Indication: DRUG USE FOR UNKNOWN INDICATION
     Route: 055
     Dates: start: 20070101
  2. ALBUTEROL [Suspect]
     Indication: DRUG USE FOR UNKNOWN INDICATION
     Route: 065
     Dates: start: 20070101
  3. OTHER MEDICATIONS [Suspect]
     Indication: ASTHMA
  4. SINGULAIR [Concomitant]

REACTIONS (9)
  - APHASIA [None]
  - COUGH [None]
  - DRUG INEFFECTIVE [None]
  - DYSPNOEA [None]
  - FEAR [None]
  - PALPITATIONS [None]
  - PRODUCT QUALITY ISSUE [None]
  - THROAT TIGHTNESS [None]
  - WHEEZING [None]
